FAERS Safety Report 22374496 (Version 1)
Quarter: 2023Q2

REPORT INFORMATION
  Report Type: Spontaneous
  Country: IT (occurrence: IT)
  Receive Date: 20230526
  Receipt Date: 20230526
  Transmission Date: 20230722
  Serious: Yes (Other)
  Sender: FDA-Public Use
  Company Number: None

PATIENT
  Age: 79 Year
  Sex: Male

DRUGS (7)
  1. MEROPENEM [Suspect]
     Active Substance: MEROPENEM
     Indication: Ear infection
     Dosage: 2 G, 2X/DAY (EVERY 12 HOURS)
     Route: 042
     Dates: start: 20230322, end: 20230405
  2. MEROPENEM [Suspect]
     Active Substance: MEROPENEM
     Dosage: 1 G, 3X/DAY (EVERY 8 HOURS)
     Route: 042
     Dates: start: 20230406, end: 20230409
  3. MEROPENEM [Suspect]
     Active Substance: MEROPENEM
     Dosage: 1 G, 2X/DAY (EVERY 12 HOURS)
     Route: 042
     Dates: start: 20230410, end: 20230411
  4. MEROPENEM [Suspect]
     Active Substance: MEROPENEM
     Dosage: 500 MG, 2X/DAY (EVERY 12 HOURS)
     Route: 042
     Dates: start: 20230412, end: 20230417
  5. MEROPENEM [Suspect]
     Active Substance: MEROPENEM
     Dosage: 500 MG, 3X/DAY (EVERY 8 HOURS)
     Route: 042
     Dates: start: 20230417, end: 20230420
  6. METFORMIN HYDROCHLORIDE [Concomitant]
     Active Substance: METFORMIN HYDROCHLORIDE
     Dosage: 1000 MG X 2
     Route: 048
     Dates: end: 20230406
  7. TEICOPLANIN [Concomitant]
     Active Substance: TEICOPLANIN
     Indication: Ear infection
     Dosage: 576 MG, DAILY
     Route: 042
     Dates: start: 20230322, end: 20230420

REACTIONS (1)
  - Drug-induced liver injury [Recovered/Resolved]

NARRATIVE: CASE EVENT DATE: 20230301
